FAERS Safety Report 17429063 (Version 1)
Quarter: 2020Q1

REPORT INFORMATION
  Report Type: Spontaneous
  Country: HR (occurrence: HR)
  Receive Date: 20200217
  Receipt Date: 20200217
  Transmission Date: 20200409
  Serious: Yes (Other)
  Sender: FDA-Public Use
  Company Number: HR-US-PROVELL PHARMACEUTICALS LLC-E2B_90074734

PATIENT
  Age: 52 Year
  Sex: Female
  Weight: 68 kg

DRUGS (1)
  1. EUTHYROX [Suspect]
     Active Substance: LEVOTHYROXINE SODIUM
     Indication: POST PROCEDURAL HYPOTHYROIDISM
     Dosage: ONE PILL
     Route: 048
     Dates: start: 20180101

REACTIONS (9)
  - Defaecation disorder [Unknown]
  - Therapeutic response changed [Unknown]
  - Headache [Unknown]
  - Diarrhoea [Unknown]
  - Depression [Unknown]
  - Blood thyroid stimulating hormone increased [Unknown]
  - Vomiting [Unknown]
  - Heart rate increased [Unknown]
  - Abdominal distension [Unknown]

NARRATIVE: CASE EVENT DATE: 20191111
